FAERS Safety Report 6208791-4 (Version None)
Quarter: 2009Q2

REPORT INFORMATION
  Report Type: 
  Country: None (occurrence: None)
  Receive Date: 20090529
  Receipt Date: 20090424
  Transmission Date: 20091009
  Serious: No
  Sender: FDA-Public Use
  Company Number: US-BAYER-200911326BCC

PATIENT
  Age: 55 Year
  Sex: Female
  Weight: 68 kg

DRUGS (4)
  1. FINACEA [Suspect]
     Indication: ROSACEA
     Dosage: TOTAL DAILY DOSE: 15 %  UNIT DOSE: 15 %
     Route: 061
     Dates: start: 20090424, end: 20090424
  2. FINACEA [Suspect]
     Dosage: TOTAL DAILY DOSE: 15 %  UNIT DOSE: 15 %
     Route: 061
     Dates: start: 20090426
  3. AVITA [Concomitant]
     Indication: DRUG USE FOR UNKNOWN INDICATION
     Dosage: UNK
     Route: 061
  4. CETAPHIL [Concomitant]
     Indication: DRUG USE FOR UNKNOWN INDICATION
     Dosage: UNK
     Route: 061

REACTIONS (3)
  - BURNING SENSATION [None]
  - FEELING HOT [None]
  - PARAESTHESIA [None]
